FAERS Safety Report 14818685 (Version 1)
Quarter: 2018Q2

REPORT INFORMATION
  Report Type: Spontaneous
  Country: US (occurrence: US)
  Receive Date: 20180427
  Receipt Date: 20180427
  Transmission Date: 20180711
  Serious: No
  Sender: FDA-Public Use
  Company Number: US-PFIZER INC-2018172491

PATIENT
  Age: 69 Year
  Sex: Female
  Weight: 125.62 kg

DRUGS (2)
  1. DAPTOMYCIN. [Suspect]
     Active Substance: DAPTOMYCIN
     Indication: OSTEOMYELITIS
     Dosage: 760 MG, ALTERNATE DAY (760MG EVERY 48HRS VIA GRAVITY INFUSION) (EVERY OTHER DAY)
     Route: 041
     Dates: start: 20180402, end: 201804
  2. ZOSYN [Concomitant]
     Active Substance: PIPERACILLIN SODIUM\TAZOBACTAM SODIUM
     Indication: OSTEOMYELITIS
     Dosage: 3.375 G, 2X/DAY (EVERY 12 HOURS)
     Route: 042
     Dates: start: 20180402

REACTIONS (6)
  - Chills [Recovered/Resolved]
  - Malaise [Unknown]
  - Product use in unapproved indication [Unknown]
  - Tremor [Recovered/Resolved]
  - Vomiting [Not Recovered/Not Resolved]
  - Nasopharyngitis [Unknown]

NARRATIVE: CASE EVENT DATE: 20180408
